FAERS Safety Report 4787179-7 (Version None)
Quarter: 2005Q3

REPORT INFORMATION
  Report Type: 
  Country: None (occurrence: None)
  Receive Date: 20050927
  Receipt Date: 20050622
  Transmission Date: 20060218
  Serious: No
  Sender: FDA-Public Use
  Company Number: USA0506101151

PATIENT
  Sex: Female

DRUGS (3)
  1. STRATTERA [Suspect]
     Indication: ATTENTION DEFICIT/HYPERACTIVITY DISORDER
     Dosage: 40 MG DAY
     Dates: end: 20050622
  2. RITALIN LA [Concomitant]
  3. VALIUM [Concomitant]

REACTIONS (4)
  - CONSTIPATION [None]
  - DYSMENORRHOEA [None]
  - MENSTRUAL DISORDER [None]
  - WEIGHT INCREASED [None]
